FAERS Safety Report 6184318-0 (Version None)
Quarter: 2009Q2

REPORT INFORMATION
  Report Type: 
  Country: None (occurrence: None)
  Receive Date: 20090508
  Receipt Date: 20090506
  Transmission Date: 20091009
  Serious: Yes (Other)
  Sender: FDA-Public Use
  Company Number: FR-RB-015219-09

PATIENT
  Age: 28 Year
  Sex: Male

DRUGS (1)
  1. SUBUTEX [Suspect]
     Dosage: 6 MG DAILY WITH DECREASING DOSES
     Route: 048
     Dates: start: 20070101

REACTIONS (3)
  - AZOOSPERMIA [None]
  - HYPERPROLACTINAEMIA [None]
  - INCORRECT ROUTE OF DRUG ADMINISTRATION [None]
